FAERS Safety Report 4980349-4 (Version None)
Quarter: 2006Q2

REPORT INFORMATION
  Report Type: 
  Country: None (occurrence: None)
  Receive Date: 20060420
  Receipt Date: 20060420
  Transmission Date: 20061013
  Serious: Yes (Life-Threatening)
  Sender: FDA-Public Use
  Company Number: None

PATIENT
  Sex: Male
  Weight: 48.9885 kg

DRUGS (5)
  1. ABILIFY [Suspect]
     Indication: ATTENTION DEFICIT/HYPERACTIVITY DISORDER
     Dosage: 5 MG  QHS  PO
     Route: 048
     Dates: start: 20051201
  2. ABILIFY [Suspect]
     Indication: DYSTHYMIC DISORDER
     Dosage: 5 MG  QHS  PO
     Route: 048
     Dates: start: 20051201
  3. ABILIFY [Suspect]
     Indication: ATTENTION DEFICIT/HYPERACTIVITY DISORDER
     Dosage: 5 MG  QHS  PO
     Route: 048
     Dates: start: 20060126
  4. ABILIFY [Suspect]
     Indication: DYSTHYMIC DISORDER
     Dosage: 5 MG  QHS  PO
     Route: 048
     Dates: start: 20060126
  5. PAXIL [Concomitant]

REACTIONS (2)
  - DYSPNOEA [None]
  - DYSTONIA [None]
